FAERS Safety Report 6571938-4 (Version None)
Quarter: 2010Q1

REPORT INFORMATION
  Report Type: 
  Country: None (occurrence: None)
  Receive Date: 20100205
  Receipt Date: 20100128
  Transmission Date: 20100710
  Serious: Yes (Other)
  Sender: FDA-Public Use
  Company Number: BR-ROCHE-682680

PATIENT
  Sex: Male

DRUGS (2)
  1. ROACUTAN [Suspect]
     Indication: DRUG USE FOR UNKNOWN INDICATION
     Route: 065
     Dates: end: 20090501
  2. ALCOHOLIC BEVERAGE [Interacting]
     Indication: DRUG USE FOR UNKNOWN INDICATION
     Dosage: DRUG NAME: ALCOHOL BEVERAGES
     Route: 065

REACTIONS (2)
  - ALCOHOL INTERACTION [None]
  - PSYCHOTIC DISORDER [None]
